FAERS Safety Report 7443086-2 (Version None)
Quarter: 2011Q2

REPORT INFORMATION
  Report Type: 
  Country: None (occurrence: None)
  Receive Date: 20110428
  Receipt Date: 20110427
  Transmission Date: 20111010
  Serious: Yes (Death, Hospitalization)
  Sender: FDA-Public Use
  Company Number: IT-SANOFI-AVENTIS-2011SA022966

PATIENT
  Age: 64 Year
  Sex: Female

DRUGS (2)
  1. METFORMIN [Suspect]
     Route: 048
     Dates: start: 20070901, end: 20090914
  2. SOLOSA [Suspect]
     Route: 048
     Dates: start: 20080901, end: 20090914

REACTIONS (4)
  - VOMITING [None]
  - RENAL FAILURE ACUTE [None]
  - LACTIC ACIDOSIS [None]
  - HYPOGLYCAEMIA [None]
